FAERS Safety Report 6564542-5 (Version None)
Quarter: 2010Q1

REPORT INFORMATION
  Report Type: 
  Country: None (occurrence: None)
  Receive Date: 20100201
  Receipt Date: 20100118
  Transmission Date: 20100710
  Serious: Yes (Hospitalization)
  Sender: FDA-Public Use
  Company Number: PHHY2010FR02773

PATIENT
  Sex: Female

DRUGS (6)
  1. LEPONEX [Suspect]
     Indication: BIPOLAR I DISORDER
     Dosage: UNK
     Dates: start: 20070214
  2. ABILIFY [Suspect]
     Indication: BIPOLAR I DISORDER
     Dosage: 30 MG, QD
     Dates: start: 20090201
  3. NOZINAN [Suspect]
     Indication: BIPOLAR I DISORDER
     Dosage: 100 MG, QD
     Dates: start: 20090201
  4. CYMBALTA [Suspect]
     Indication: BIPOLAR I DISORDER
     Dosage: 60 MG, QD
     Dates: start: 20090201
  5. RIVOTRIL [Suspect]
     Indication: BIPOLAR I DISORDER
     Dosage: 2 MG, QD
  6. ATARAX [Suspect]
     Indication: BIPOLAR I DISORDER
     Dosage: 75 MG, UNK

REACTIONS (7)
  - ELECTROENCEPHALOGRAM ABNORMAL [None]
  - FACIAL BONES FRACTURE [None]
  - FALL [None]
  - GRAND MAL CONVULSION [None]
  - MAXILLOFACIAL OPERATION [None]
  - PSYCHIATRIC DECOMPENSATION [None]
  - SEDATION [None]
